FAERS Safety Report 23748685 (Version 3)
Quarter: 2024Q3

REPORT INFORMATION
  Report Type: Report from Study
  Country: CA (occurrence: CA)
  Receive Date: 20240416
  Receipt Date: 20240914
  Transmission Date: 20241016
  Serious: Yes (Other)
  Sender: TAKEDA
  Company Number: CA-TAKEDA-2023TUS010637

PATIENT
  Sex: Female
  Weight: 58.9 kg

DRUGS (4)
  1. HUMAN IMMUNOGLOBULIN G [Suspect]
     Active Substance: HUMAN IMMUNOGLOBULIN G
     Indication: Immunodeficiency common variable
     Dosage: 9 GRAM, 1/WEEK
     Route: 058
     Dates: start: 20180601
  2. HUMAN IMMUNOGLOBULIN G [Suspect]
     Active Substance: HUMAN IMMUNOGLOBULIN G
     Indication: Primary immunodeficiency syndrome
     Dosage: 9 GRAM, 1/WEEK
     Route: 050
  3. HUMAN IMMUNOGLOBULIN G [Suspect]
     Active Substance: HUMAN IMMUNOGLOBULIN G
     Dosage: 9 GRAM, 1/WEEK
     Route: 058
  4. DOXYCYCLINE [Concomitant]
     Active Substance: DOXYCYCLINE\DOXYCYCLINE HYCLATE
     Indication: Pneumonia
     Dosage: 100 MILLIGRAM, QD
     Route: 065

REACTIONS (15)
  - Lower respiratory tract infection [Unknown]
  - Hepatic cirrhosis [Unknown]
  - Respiratory tract congestion [Recovering/Resolving]
  - Presyncope [Unknown]
  - COVID-19 [Recovering/Resolving]
  - Urinary tract infection [Unknown]
  - Weight decreased [Unknown]
  - Concussion [Unknown]
  - Balance disorder [Unknown]
  - Decreased appetite [Unknown]
  - Cough [Unknown]
  - Blood pressure increased [Unknown]
  - Pain in extremity [Unknown]
  - Dyspnoea [Unknown]
  - Dizziness [Not Recovered/Not Resolved]
